FAERS Safety Report 15637933 (Version 3)
Quarter: 2018Q4

REPORT INFORMATION
  Report Type: Spontaneous
  Country: US (occurrence: US)
  Receive Date: 20181120
  Receipt Date: 20181227
  Transmission Date: 20190205
  Serious: No
  Sender: FDA-Public Use
  Company Number: US-JNJFOC-20180710960

PATIENT
  Sex: Female
  Weight: 123 kg

DRUGS (13)
  1. IMBRUVICA [Suspect]
     Active Substance: IBRUTINIB
     Indication: LYMPHOID LEUKAEMIA (IN REMISSION)
     Dosage: 140 MG, UNK
     Route: 048
  2. VITAMIN D [Concomitant]
     Active Substance: CHOLECALCIFEROL
     Dosage: 1000 UNIT, QD
     Route: 048
  3. BIOTIN [Concomitant]
     Active Substance: BIOTIN
  4. CHONDROITIN SULFATE W/GLUCOSAMINE [Concomitant]
     Dosage: 500-600 MG
     Route: 048
  5. IMBRUVICA [Suspect]
     Active Substance: IBRUTINIB
     Indication: LYMPHOID LEUKAEMIA (IN REMISSION)
     Dosage: 420 MG, QD
     Route: 048
     Dates: start: 20180529
  6. CLARITIN [Concomitant]
     Active Substance: LORATADINE
     Route: 048
  7. ZITHROMAX [Concomitant]
     Active Substance: AZITHROMYCIN DIHYDRATE
  8. FLONASE [Concomitant]
     Active Substance: FLUTICASONE PROPIONATE
     Route: 045
  9. ZITHROMAX [Concomitant]
     Active Substance: AZITHROMYCIN DIHYDRATE
     Dosage: 250 MG, 4 TIMES DAILY
  10. FLAGYL [Concomitant]
     Active Substance: METRONIDAZOLE\METRONIDAZOLE HYDROCHLORIDE
     Dosage: 500 MG, EVERY 8 HOURS
     Route: 048
  11. VITAMIN D [Concomitant]
     Active Substance: CHOLECALCIFEROL
     Dosage: 5000 DAILY
     Route: 048
  12. CALCIUM MAGNESIUM CARBONATE. [Concomitant]
     Active Substance: CALCIUM MAGNESIUM CARBONATE
  13. MULTIVITAMINS [Concomitant]
     Active Substance: VITAMINS
     Route: 048

REACTIONS (8)
  - Off label use [Unknown]
  - Iron deficiency [Unknown]
  - Infection [Unknown]
  - Dry skin [Unknown]
  - Hypertension [Not Recovered/Not Resolved]
  - Alopecia [Unknown]
  - Incorrect dose administered [Unknown]
  - Onychoclasis [Unknown]

NARRATIVE: CASE EVENT DATE: 2018
